FAERS Safety Report 5090620-6 (Version None)
Quarter: 2006Q3

REPORT INFORMATION
  Report Type: 
  Country: None (occurrence: None)
  Receive Date: 20060823
  Receipt Date: 20060810
  Transmission Date: 20061208
  Serious: Yes (Hospitalization)
  Sender: FDA-Public Use
  Company Number: HQWYE362411AUG06

PATIENT
  Sex: Male

DRUGS (3)
  1. MYLOTARG [Suspect]
     Indication: DRUG USE FOR UNKNOWN INDICATION
     Dates: start: 20060808, end: 20060808
  2. DIPHENHYDRAMINE HCL [Concomitant]
  3. ACETAMINOPHEN [Concomitant]

REACTIONS (3)
  - CHILLS [None]
  - INFUSION RELATED REACTION [None]
  - TREMOR [None]
